FAERS Safety Report 21602262 (Version 1)
Quarter: 2022Q4

REPORT INFORMATION
  Report Type: Spontaneous
  Country: US (occurrence: None)
  Receive Date: 20221115
  Receipt Date: 20221115
  Transmission Date: 20230113
  Serious: Yes (Life-Threatening, Hospitalization, Other)
  Sender: FDA-Public Use
  Company Number: None

PATIENT
  Age: 74 Year
  Sex: Male
  Weight: 80.4 kg

DRUGS (1)
  1. YESCARTA [Suspect]
     Active Substance: AXICABTAGENE CILOLEUCEL
     Indication: Diffuse large B-cell lymphoma
     Dosage: FREQUENCY : ONCE;?
     Route: 042
     Dates: start: 20220822, end: 20220822

REACTIONS (5)
  - Cytokine release syndrome [None]
  - Inflammatory marker increased [None]
  - Immune effector cell-associated neurotoxicity syndrome [None]
  - Delirium [None]
  - Aphasia [None]

NARRATIVE: CASE EVENT DATE: 20220830
